FAERS Safety Report 9841171 (Version 1)
Quarter: 2013Q4

REPORT INFORMATION
  Report Type: Spontaneous
  Country: US (occurrence: None)
  Receive Date: 20131219
  Receipt Date: 20131219
  Transmission Date: 20140711
  Serious: Yes (Other)
  Sender: FDA-Public Use
  Company Number: 163-20785-12071418

PATIENT
  Age: 73 Year
  Sex: Female
  Weight: 76.2 kg

DRUGS (20)
  1. THALOMID [Suspect]
     Indication: PLASMA CELL MYELOMA
     Dosage: 100 MG, 2 IN 1 D, PO
     Route: 048
     Dates: start: 200412, end: 200501
  2. CELEBREX (CELECOXIB) (UNKNOWN) [Concomitant]
  3. IBUPROFEN (IBUPROFEN) (UNKNOWN) [Concomitant]
  4. LEXAPRO (ESCITALOPRAM OXALATE) (UNKNOWN) [Concomitant]
  5. LORAZEPAM (LORAZEPAM) (UNKNOWN) [Concomitant]
  6. NEXIUM (ESOMEPRAZOLE) (UNKNOWN) [Concomitant]
  7. PATADAY (OLOPATADINE HYDROCHORIDE) (UNKNOWN) [Concomitant]
  8. SINGULAIR (MONTELUKAST SODIUM) (UNKNOWN) [Concomitant]
  9. TYLENOL (PARACETAMOL) (UNKNOWN) [Concomitant]
  10. CENTRUM SILVER (CENTRUM SILVER) (TABLETS) [Concomitant]
  11. CLARINEX (DESLORATADINE) (UNKNOWN) [Concomitant]
  12. FLUTICASONE (FLUTICASONE) (SPRAY (NOT INHALATION)) [Concomitant]
  13. HYDROCODONE (HYDROCODONE) (UNKNOWN) [Concomitant]
  14. BEXTRA (VALDECOXIB) (UNKNOWN) [Concomitant]
  15. PROTONIX (PANTOPRAZOLE SODIUM) (UNKNOWN) [Concomitant]
  16. DEXAMETHASONE (DEXAMETHASONE) (UNKNOWN) [Concomitant]
  17. ZOMETA (ZOLEDRONIC ACID) (UNKNOWN) [Concomitant]
  18. VITAMIN D (ERGOCALCIFEROL) (UNKNOWN) [Concomitant]
  19. XANAX (ALPRAZOLAM) (UNKNOWN) [Concomitant]
  20. LASIX (FUROSEMIDE) (UNKNOWN) [Concomitant]

REACTIONS (2)
  - Pulmonary embolism [None]
  - Dyspnoea exertional [None]
